FAERS Safety Report 6234106-1 (Version None)
Quarter: 2009Q2

REPORT INFORMATION
  Report Type: 
  Country: None (occurrence: None)
  Receive Date: 20090616
  Receipt Date: 20090616
  Transmission Date: 20091009
  Serious: No
  Sender: FDA-Public Use
  Company Number: None

PATIENT
  Sex: Male
  Weight: 32.659 kg

DRUGS (4)
  1. SINGULAIR [Suspect]
     Indication: ASTHMA
     Dosage: HS PO
     Route: 048
     Dates: start: 20061001, end: 20090615
  2. SINGULAIR [Suspect]
     Indication: MULTIPLE ALLERGIES
     Dosage: HS PO
     Route: 048
     Dates: start: 20061001, end: 20090615
  3. ZYRTEC [Concomitant]
  4. MULTI-VITAMIN [Concomitant]

REACTIONS (10)
  - ABDOMINAL PAIN [None]
  - AGGRESSION [None]
  - ANXIETY [None]
  - ATTENTION DEFICIT/HYPERACTIVITY DISORDER [None]
  - DISTURBANCE IN ATTENTION [None]
  - HEADACHE [None]
  - INSOMNIA [None]
  - MIGRAINE [None]
  - MORBID THOUGHTS [None]
  - TIC [None]
